FAERS Safety Report 21058934 (Version 2)
Quarter: 2022Q3

REPORT INFORMATION
  Report Type: Spontaneous
  Country: JP (occurrence: JP)
  Receive Date: 20220708
  Receipt Date: 20220715
  Transmission Date: 20221026
  Serious: Yes (Hospitalization, Other)
  Sender: FDA-Public Use
  Company Number: JP-MSD-1904JPN002543J

PATIENT
  Age: 62 Year
  Sex: Female
  Weight: 84 kg

DRUGS (7)
  1. KEYTRUDA [Suspect]
     Active Substance: PEMBROLIZUMAB
     Indication: Colon cancer stage IV
     Dosage: 200 MILLIGRAM, Q3W
     Route: 041
     Dates: start: 20190417, end: 2019
  2. KEYTRUDA [Suspect]
     Active Substance: PEMBROLIZUMAB
     Dosage: 200 MILLIGRAM, Q3W
     Route: 041
     Dates: start: 2019, end: 20200402
  3. ZOLPIDEM TARTRATE [Concomitant]
     Active Substance: ZOLPIDEM TARTRATE
     Indication: Insomnia
     Dosage: 10 MILLIGRAM, QD
     Route: 048
     Dates: start: 20181112
  4. METHYLCOBALAMIN [Concomitant]
     Active Substance: METHYLCOBALAMIN
     Indication: Neuropathy peripheral
     Dosage: 500 MICROGRAM, TID
     Route: 048
     Dates: start: 20181112
  5. NEXIUM [Concomitant]
     Active Substance: ESOMEPRAZOLE MAGNESIUM
     Indication: Chronic gastritis
     Dosage: 20 MILLIGRAM, QD
     Route: 048
     Dates: start: 20181112
  6. MAGNESIUM OXIDE [Concomitant]
     Active Substance: MAGNESIUM OXIDE
     Indication: Constipation
     Dosage: 660 MILLIGRAM, TID
     Route: 048
  7. LIVACT [ISOLEUCINE;LEUCINE;VALINE] [Concomitant]
     Indication: Hypoalbuminaemia
     Dosage: 20 GRAM, QD
     Route: 048

REACTIONS (11)
  - Adrenocorticotropic hormone deficiency [Recovering/Resolving]
  - Thyroid disorder [Recovering/Resolving]
  - Immune-mediated adverse reaction [Recovering/Resolving]
  - Pyrexia [Recovered/Resolved]
  - Back pain [Recovered/Resolved]
  - Infusion related reaction [Unknown]
  - Hypothyroidism [Unknown]
  - Immune-mediated hypophysitis [Recovering/Resolving]
  - Interstitial lung disease [Recovering/Resolving]
  - Immune-mediated lung disease [Recovering/Resolving]
  - Off label use [Unknown]

NARRATIVE: CASE EVENT DATE: 20190417
